FAERS Safety Report 14930450 (Version 1)
Quarter: 2018Q2

REPORT INFORMATION
  Report Type: Spontaneous
  Country: US (occurrence: US)
  Receive Date: 20180523
  Receipt Date: 20180523
  Transmission Date: 20180711
  Serious: No
  Sender: FDA-Public Use
  Company Number: US-009507513-1805USA006601

PATIENT
  Age: 65 Year
  Sex: Male

DRUGS (3)
  1. INTRON A [Suspect]
     Active Substance: INTERFERON ALFA-2B
     Indication: LYMPHOMATOID PAPULOSIS
     Dosage: 0.35 ML/THREE TIMES A WEEK
     Dates: start: 2014
  2. PROTONIX [Concomitant]
     Active Substance: PANTOPRAZOLE SODIUM
  3. METFORMIN [Concomitant]
     Active Substance: METFORMIN HYDROCHLORIDE

REACTIONS (3)
  - Product use in unapproved indication [Unknown]
  - Injection site pain [Recovering/Resolving]
  - Injection site induration [Recovering/Resolving]

NARRATIVE: CASE EVENT DATE: 20180507
